FAERS Safety Report 11718657 (Version 2)
Quarter: 2015Q4

REPORT INFORMATION
  Report Type: Spontaneous
  Country: US (occurrence: US)
  Receive Date: 20151109
  Receipt Date: 20151130
  Transmission Date: 20160304
  Serious: Yes (Hospitalization, Other)
  Sender: FDA-Public Use
  Company Number: US-SMITH AND NEPHEW, INC-2015SMT00489

PATIENT
  Age: 63 Year
  Sex: Female
  Weight: 104.31 kg

DRUGS (2)
  1. REGRANEX [Suspect]
     Active Substance: BECAPLERMIN
     Indication: DIABETIC FOOT
     Dosage: UNK, 2X/DAY
     Route: 061
     Dates: start: 201506, end: 20151004
  2. INSULIN (UNSPECIFIED) [Concomitant]
     Dosage: UNK

REACTIONS (6)
  - Toe amputation [Recovered/Resolved with Sequelae]
  - Blood urea increased [Recovering/Resolving]
  - Inappropriate schedule of drug administration [Recovered/Resolved]
  - Staphylococcal osteomyelitis [Unknown]
  - Wound infection staphylococcal [Recovered/Resolved with Sequelae]
  - Renal function test abnormal [Recovering/Resolving]

NARRATIVE: CASE EVENT DATE: 2015
